FAERS Safety Report 23825357 (Version 1)
Quarter: 2024Q2

REPORT INFORMATION
  Report Type: Spontaneous
  Country: US (occurrence: None)
  Receive Date: 20240506
  Receipt Date: 20240506
  Transmission Date: 20240716
  Serious: Yes (Hospitalization)
  Sender: FDA-Public Use
  Company Number: None

PATIENT
  Age: 72 Year
  Sex: Male

DRUGS (10)
  1. NPLATE [Suspect]
     Active Substance: ROMIPLOSTIM
     Indication: Immune thrombocytopenia
     Route: 058
     Dates: start: 20231110
  2. ATORVASTATIN [Concomitant]
  3. BUPROPION HYDROCHLORIDE [Concomitant]
     Active Substance: BUPROPION HYDROCHLORIDE
  4. CRESTOR [Concomitant]
     Active Substance: ROSUVASTATIN CALCIUM
  5. CYCLOBENZAPRINE [Concomitant]
     Active Substance: CYCLOBENZAPRINE
  6. D-2000 MAXIMUM STRENGTH [Concomitant]
  7. FISH OIL [Concomitant]
     Active Substance: FISH OIL
  8. HYDROCO/APAP [Concomitant]
  9. HYDROXYZINE PAMOATE [Concomitant]
     Active Substance: HYDROXYZINE PAMOATE
  10. LISINOPRIL [Concomitant]

REACTIONS (2)
  - Pneumonia [None]
  - Platelet count decreased [None]

NARRATIVE: CASE EVENT DATE: 20240502
